FAERS Safety Report 17779870 (Version 1)
Quarter: 2020Q2

REPORT INFORMATION
  Report Type: Spontaneous
  Country: CN (occurrence: CN)
  Receive Date: 20200514
  Receipt Date: 20200514
  Transmission Date: 20200714
  Serious: Yes (Other)
  Sender: FDA-Public Use
  Company Number: CN-UCBSA-2020019591

PATIENT
  Age: 34 Year
  Sex: Male
  Weight: 60 kg

DRUGS (2)
  1. OU LAN TONG [Suspect]
     Active Substance: OXIRACETAM
     Indication: EPILEPSY
     Dosage: 0.15 GRAM, 2X/DAY (BID)
     Route: 048
     Dates: start: 20200130, end: 20200203
  2. LEVETIRACETAM. [Suspect]
     Active Substance: LEVETIRACETAM
     Indication: EPILEPSY
     Dosage: 0.5 GRAM MORNING AND 0.75GRAMS EVENING, 2X/DAY (BID)
     Route: 048
     Dates: start: 20200130, end: 20200203

REACTIONS (3)
  - Off label use [Unknown]
  - Thrombocytopenia [Recovering/Resolving]
  - Hepatic function abnormal [Recovering/Resolving]

NARRATIVE: CASE EVENT DATE: 20200130
